FAERS Safety Report 7775930-3 (Version None)
Quarter: 2011Q3

REPORT INFORMATION
  Report Type: 
  Country: None (occurrence: None)
  Receive Date: 20110923
  Receipt Date: 20110918
  Transmission Date: 20111222
  Serious: Yes (Death, Other)
  Sender: FDA-Public Use
  Company Number: IR-GENENTECH-324619

PATIENT
  Age: 7 Year

DRUGS (1)
  1. MABTHERA [Suspect]
     Indication: JUVENILE ARTHRITIS
     Dosage: FORM: INFUSION; FREQUENCY REPORTED: 100MG
     Route: 042
     Dates: start: 20110401

REACTIONS (3)
  - HYPOTENSION [None]
  - SUDDEN DEATH [None]
  - FLUSHING [None]
